FAERS Safety Report 10986602 (Version 1)
Quarter: 2015Q2

REPORT INFORMATION
  Report Type: Spontaneous
  Country: JP (occurrence: None)
  Receive Date: 20150402
  Receipt Date: 20150402
  Transmission Date: 20150821
  Serious: Yes (Hospitalization)
  Sender: FDA-Public Use
  Company Number: 2015FE00968

PATIENT
  Age: 78 Year
  Sex: Male

DRUGS (4)
  1. GONAX [Suspect]
     Active Substance: DEGARELIX
     Indication: PROSTATE CANCER
     Route: 058
     Dates: start: 20140605
  2. OXINORM (OXYCODONE HYDROCHLORIDE) [Concomitant]
     Active Substance: OXYCODONE HYDROCHLORIDE
  3. XTANDI [Suspect]
     Active Substance: ENZALUTAMIDE
     Indication: PROSTATE CANCER
     Route: 048
     Dates: start: 20140807, end: 20140903
  4. RANMARK (DENOSUMAB) [Concomitant]
     Active Substance: DENOSUMAB

REACTIONS (2)
  - Intentional product misuse [None]
  - Decreased appetite [None]

NARRATIVE: CASE EVENT DATE: 20040605
